FAERS Safety Report 7961244-5 (Version None)
Quarter: 2011Q4

REPORT INFORMATION
  Report Type: 
  Country: None (occurrence: None)
  Receive Date: 20111202
  Receipt Date: 20110812
  Transmission Date: 20120403
  Serious: Yes (Hospitalization)
  Sender: FDA-Public Use
  Company Number: 2011MA011803

PATIENT
  Age: 54 Year
  Sex: Male
  Weight: 121.3 kg

DRUGS (7)
  1. LORAZEPAM [Concomitant]
  2. GABAPENTIN [Concomitant]
  3. SORAFENIB [Suspect]
     Indication: METASTATIC RENAL CELL CARCINOMA
     Dosage: 400 MG;QOD;PO
     Route: 048
     Dates: start: 20100222, end: 20100305
  4. COMPAZINE [Concomitant]
  5. OXYCODONE HCL [Suspect]
     Indication: PAIN
     Dosage: 15 MG;Q6H;PO
     Route: 048
     Dates: start: 20100225, end: 20100525
  6. CARISOPRODOL [Concomitant]
  7. METHADONE HYDROCHLORIDE [Suspect]
     Indication: PAIN
     Dosage: 10 MG;Q4H;PO
     Route: 048
     Dates: start: 20100225, end: 20100525

REACTIONS (5)
  - TREATMENT NONCOMPLIANCE [None]
  - HYPONATRAEMIA [None]
  - TOXICITY TO VARIOUS AGENTS [None]
  - BLISTER [None]
  - RASH [None]
